FAERS Safety Report 21497527 (Version 2)
Quarter: 2022Q4

REPORT INFORMATION
  Report Type: Report from Study
  Country: US (occurrence: US)
  Receive Date: 20221024
  Receipt Date: 20221027
  Transmission Date: 20230113
  Serious: No
  Sender: FDA-Public Use
  Company Number: US-NOVARTISTESTPH-NVSC2022US238683

PATIENT
  Age: 14 Year
  Sex: Male

DRUGS (1)
  1. OMNITROPE [Suspect]
     Active Substance: SOMATROPIN
     Indication: Short stature
     Dosage: 0.34 ML, QD
     Route: 058
     Dates: start: 20220721

REACTIONS (3)
  - Injection site haemorrhage [Recovered/Resolved]
  - Injection site vesicles [Unknown]
  - Injection site mass [Unknown]

NARRATIVE: CASE EVENT DATE: 20221012
